FAERS Safety Report 5313117-4 (Version None)
Quarter: 2007Q1

REPORT INFORMATION
  Report Type: 
  Country: None (occurrence: None)
  Receive Date: 20070201
  Receipt Date: 20070201
  Transmission Date: 20070707
  Serious: No
  Sender: FDA-Public Use
  Company Number: VNL_0284_2006

PATIENT
  Age: 70 Year
  Sex: Female

DRUGS (3)
  1. APOKYN [Suspect]
     Indication: PARKINSON'S DISEASE
     Dosage: 0.2 ML PRN SC
     Route: 058
     Dates: start: 20061031
  2. COUMADIN [Concomitant]
  3. BP MEDS [Concomitant]

REACTIONS (3)
  - CONDITION AGGRAVATED [None]
  - DYSPNOEA [None]
  - SWOLLEN TONGUE [None]
